FAERS Safety Report 4914925-1 (Version None)
Quarter: 2006Q1

REPORT INFORMATION
  Report Type: 
  Country: None (occurrence: None)
  Receive Date: 20060215
  Receipt Date: 20060215
  Transmission Date: 20060701
  Serious: Yes (Hospitalization)
  Sender: FDA-Public Use
  Company Number: None

PATIENT
  Sex: Male
  Weight: 58.9676 kg

DRUGS (11)
  1. LANTUS [Suspect]
     Indication: DIABETES MELLITUS
     Dosage: 22 UNITS QHS [PRIOR TO ADMISSION]
  2. PREDNISONE [Concomitant]
  3. IMURAN [Concomitant]
  4. NEORAL [Concomitant]
  5. PROCARDIA XL [Concomitant]
  6. ACCUPRIL [Concomitant]
  7. LIPITOR [Concomitant]
  8. FOSAMAX [Concomitant]
  9. VITAMIN [Concomitant]
  10. LANTUS [Concomitant]
  11. HUMALOG [Concomitant]

REACTIONS (3)
  - HYPOGLYCAEMIA [None]
  - LABORATORY TEST ABNORMAL [None]
  - LOSS OF CONSCIOUSNESS [None]
